FAERS Safety Report 5448551-5 (Version None)
Quarter: 2007Q3

REPORT INFORMATION
  Report Type: 
  Country: None (occurrence: None)
  Receive Date: 20070905
  Receipt Date: 20070822
  Transmission Date: 20080115
  Serious: Yes (Death)
  Sender: FDA-Public Use
  Company Number: POMP-11161

PATIENT
  Age: 9 Month
  Sex: Male
  Weight: 6.28 kg

DRUGS (2)
  1. MYOZYME [Suspect]
     Indication: GLYCOGEN STORAGE DISEASE TYPE II
     Dosage: 20 MG Q2WKS IV
     Route: 042
     Dates: start: 20070802
  2. MYOZYME [Suspect]
     Indication: GLYCOGEN STORAGE DISEASE TYPE II
     Dosage: 10 MG Q2WKS IV
     Route: 042
     Dates: start: 20070802

REACTIONS (1)
  - CARDIAC ARREST [None]
